FAERS Safety Report 6393743-4 (Version None)
Quarter: 2009Q4

REPORT INFORMATION
  Report Type: 
  Country: None (occurrence: None)
  Receive Date: 20091008
  Receipt Date: 20090929
  Transmission Date: 20100525
  Serious: Yes (Other)
  Sender: FDA-Public Use
  Company Number: GB-ROCHE-659695

PATIENT
  Age: 65 Year
  Sex: Female
  Weight: 59 kg

DRUGS (8)
  1. CAPECITABINE [Suspect]
     Indication: DRUG USE FOR UNKNOWN INDICATION
     Dosage: FREQUENCY: 1 DAYS.
     Route: 048
     Dates: start: 20090702, end: 20090706
  2. CAPECITABINE [Suspect]
     Dosage: DRUG WITHDRAWN
     Route: 048
  3. PROCHLORPERAZINE MALEATE [Concomitant]
  4. CO-CODAMOL [Concomitant]
     Route: 048
  5. FENTANYL-100 [Concomitant]
     Route: 062
  6. METOCLOPRAMIDE [Concomitant]
  7. NORTRIPTYLINE HCL [Concomitant]
     Route: 048
  8. RANITIDINE [Concomitant]
     Route: 048

REACTIONS (3)
  - DYSTONIA [None]
  - GAIT DISTURBANCE [None]
  - TREMOR [None]
